FAERS Safety Report 6308488-6 (Version None)
Quarter: 2009Q3

REPORT INFORMATION
  Report Type: 
  Country: None (occurrence: None)
  Receive Date: 20090811
  Receipt Date: 20090731
  Transmission Date: 20100115
  Serious: Yes (Death)
  Sender: FDA-Public Use
  Company Number: GXKR2009GB08740

PATIENT
  Sex: Female

DRUGS (2)
  1. AMISULPRIDE (NGX) (AMISULPRIDE) UNKNOWN [Suspect]
     Dosage: 600 MG/DAY, ORAL
     Route: 048
  2. METFORMIN HCL [Suspect]
     Dosage: 1000 MG, BID, ORAL
     Route: 048

REACTIONS (1)
  - DRUG TOXICITY [None]
